FAERS Safety Report 14556204 (Version 1)
Quarter: 2018Q1

REPORT INFORMATION
  Report Type: Spontaneous
  Country: NL (occurrence: NL)
  Receive Date: 20180221
  Receipt Date: 20180221
  Transmission Date: 20180509
  Serious: Yes (Hospitalization)
  Sender: FDA-Public Use
  Company Number: NL-SUN PHARMACEUTICAL INDUSTRIES LTD-2018RR-163898

PATIENT
  Age: 68 Year
  Sex: Male
  Weight: 95 kg

DRUGS (11)
  1. MICARDUS PLUSMICARDISPLUS TABLET 80/25MG [Concomitant]
     Indication: PRODUCT USED FOR UNKNOWN INDICATION
     Dosage: 1DD 80/25 MG
     Route: 065
  2. NOVOMIX 30NOVOMIX 30 PENFILL INJ 100E/ML PATROON 3ML [Concomitant]
     Indication: PRODUCT USED FOR UNKNOWN INDICATION
     Dosage: 2DD 24 EENHEDEN
     Route: 065
  3. ACENOCOUMAROL [Concomitant]
     Active Substance: ACENOCOUMAROL
     Indication: PRODUCT USED FOR UNKNOWN INDICATION
     Dosage: ()
     Route: 065
  4. METFORMINE [Concomitant]
     Active Substance: METFORMIN HYDROCHLORIDE
     Indication: PRODUCT USED FOR UNKNOWN INDICATION
     Dosage: 2DD1000MG
     Route: 065
  5. LANOXINLANOXIN TABLET 0,125MG [Concomitant]
     Indication: PRODUCT USED FOR UNKNOWN INDICATION
     Dosage: 1DD 0.125
     Route: 065
  6. PANTOPRAZOL [Suspect]
     Active Substance: PANTOPRAZOLE SODIUM
     Indication: DYSPEPSIA
     Dosage: 1DD 40 MG
     Route: 065
     Dates: start: 20110101, end: 20180116
  7. SIMVASTATINE [Concomitant]
     Active Substance: SIMVASTATIN
     Indication: PRODUCT USED FOR UNKNOWN INDICATION
     Dosage: 1DD40MG
     Route: 065
  8. AMLODIPINE [Concomitant]
     Active Substance: AMLODIPINE BESYLATE
     Indication: PRODUCT USED FOR UNKNOWN INDICATION
     Dosage: 1DD10MG
     Route: 065
  9. AMOXICILLINE [Concomitant]
     Active Substance: AMOXICILLIN
     Indication: PRODUCT USED FOR UNKNOWN INDICATION
     Dosage: TOT 15/1/18 ()
     Route: 065
     Dates: end: 20180115
  10. SLOW KSLOW K TABLET MGA 600MG [Concomitant]
     Indication: PRODUCT USED FOR UNKNOWN INDICATION
     Dosage: 2DD600MG
     Route: 065
  11. METOPROLOL. [Concomitant]
     Active Substance: METOPROLOL
     Indication: PRODUCT USED FOR UNKNOWN INDICATION
     Dosage: 1DD200MG
     Route: 065

REACTIONS (6)
  - Vomiting [Recovering/Resolving]
  - Muscular weakness [Recovering/Resolving]
  - Hypokalaemia [Recovering/Resolving]
  - Hypocalcaemia [Recovering/Resolving]
  - Nausea [Recovering/Resolving]
  - Hypomagnesaemia [Recovering/Resolving]

NARRATIVE: CASE EVENT DATE: 20180116
